FAERS Safety Report 7011281-2 (Version None)
Quarter: 2010Q3

REPORT INFORMATION
  Report Type: 
  Country: None (occurrence: None)
  Receive Date: 20100922
  Receipt Date: 20100922
  Transmission Date: 20110219
  Serious: Yes (Other)
  Sender: FDA-Public Use
  Company Number: None

PATIENT
  Sex: Female
  Weight: 57.6068 kg

DRUGS (1)
  1. BOTOX [Suspect]
     Indication: SKIN WRINKLING
     Dosage: EVERY 3-4 MONTHS IM
     Route: 030
     Dates: start: 20010113, end: 20100219

REACTIONS (4)
  - ANXIETY [None]
  - HYPOAESTHESIA FACIAL [None]
  - PANIC ATTACK [None]
  - SUDDEN HEARING LOSS [None]
